FAERS Safety Report 18763155 (Version 1)
Quarter: 2021Q1

REPORT INFORMATION
  Report Type: Spontaneous
  Country: US (occurrence: US)
  Receive Date: 20210120
  Receipt Date: 20210120
  Transmission Date: 20210419
  Serious: No
  Sender: FDA-Public Use
  Company Number: None

PATIENT
  Age: 72 Year
  Sex: Female
  Weight: 62.6 kg

DRUGS (10)
  1. TYLENOL 8HR [Concomitant]
     Active Substance: ACETAMINOPHEN
  2. MULTIMINERALS [Concomitant]
  3. OYSCO 500+D [Concomitant]
  4. ALELNDRONATE [Concomitant]
  5. CHLORTHALIDONE. [Concomitant]
     Active Substance: CHLORTHALIDONE
  6. LIDOCAINE. [Concomitant]
     Active Substance: LIDOCAINE
  7. MAGIC MOUTH WASH [Concomitant]
     Active Substance: ALUMINUM HYDROXIDE\DIMETHICONE\DIPHENHYDRAMINE\LIDOCAINE\MAGNESIUM HYDROXIDE
  8. PRAVASTATIN. [Concomitant]
     Active Substance: PRAVASTATIN
  9. INLYTA [Suspect]
     Active Substance: AXITINIB
     Indication: RENAL CANCER
     Route: 048
     Dates: start: 20201112, end: 20210120
  10. ASPIRIN 81MG [Concomitant]
     Active Substance: ASPIRIN

REACTIONS (3)
  - Nausea [None]
  - Dehydration [None]
  - Liver function test increased [None]

NARRATIVE: CASE EVENT DATE: 20210120
